FAERS Safety Report 9017808 (Version 2)
Quarter: 2013Q4

REPORT INFORMATION
  Report Type: Spontaneous
  Country: US (occurrence: US)
  Receive Date: 20130118
  Receipt Date: 20131126
  Transmission Date: 20140711
  Serious: Yes (Hospitalization)
  Sender: FDA-Public Use
  Company Number: US-BIOGENIDEC-2013BI004069

PATIENT
  Age: 72 Year
  Sex: Female

DRUGS (2)
  1. AVONEX [Suspect]
     Indication: MULTIPLE SCLEROSIS
     Route: 030
     Dates: start: 20001216
  2. AVONEX [Suspect]
     Indication: MULTIPLE SCLEROSIS
     Route: 030
     Dates: start: 200909

REACTIONS (5)
  - Neoplasm malignant [Not Recovered/Not Resolved]
  - Adverse drug reaction [Recovered/Resolved]
  - Abasia [Not Recovered/Not Resolved]
  - Asthenia [Recovered/Resolved]
  - Malaise [Recovered/Resolved]
